FAERS Safety Report 5990069-5 (Version None)
Quarter: 2008Q4

REPORT INFORMATION
  Report Type: 
  Country: None (occurrence: None)
  Receive Date: 20081211
  Receipt Date: 20081204
  Transmission Date: 20090506
  Serious: Yes (Death, Other)
  Sender: FDA-Public Use
  Company Number: US-BRISTOL-MYERS SQUIBB COMPANY-14435846

PATIENT
  Age: 37 Year
  Sex: Male
  Weight: 62 kg

DRUGS (11)
  1. STAVUDINE [Suspect]
     Indication: HIV INFECTION
     Route: 048
     Dates: start: 20061110, end: 20071122
  2. EFAVIRENZ [Suspect]
     Indication: HIV INFECTION
     Route: 048
     Dates: start: 20061110, end: 20071122
  3. LAMIVUDINE [Suspect]
     Indication: HIV INFECTION
     Route: 048
     Dates: start: 20061110, end: 20071122
  4. CO-TRIMOXAZOLE [Concomitant]
  5. DIGOXIN [Concomitant]
  6. ENALAPRIL MALEATE [Concomitant]
  7. LASIX [Concomitant]
  8. SLOW-K [Concomitant]
  9. SPIRONOLACTONE [Concomitant]
  10. VITAMIN B COMPLEX CAP [Concomitant]
     Dosage: FORM = CAPS
  11. WARFARIN SODIUM [Concomitant]

REACTIONS (13)
  - ARRHYTHMIA [None]
  - BLOOD ALKALINE PHOSPHATASE INCREASED [None]
  - BLOOD SODIUM DECREASED [None]
  - CARDIAC FAILURE CONGESTIVE [None]
  - CARDIOMYOPATHY [None]
  - CEREBROVASCULAR ACCIDENT [None]
  - DRUG RESISTANCE [None]
  - HAEMOGLOBIN DECREASED [None]
  - IMMUNOSUPPRESSION [None]
  - OPPORTUNISTIC INFECTION [None]
  - RED BLOOD CELL COUNT DECREASED [None]
  - VENTRICULAR ARRHYTHMIA [None]
  - WHITE BLOOD CELL COUNT DECREASED [None]
